FAERS Safety Report 7685901-3 (Version None)
Quarter: 2011Q3

REPORT INFORMATION
  Report Type: 
  Country: None (occurrence: None)
  Receive Date: 20110816
  Receipt Date: 20110812
  Transmission Date: 20111222
  Serious: Yes (Other)
  Sender: FDA-Public Use
  Company Number: GB-TEVA-293193ISR

PATIENT
  Sex: Male

DRUGS (6)
  1. ASPIRIN [Concomitant]
     Route: 048
  2. GTN SPRAY [Concomitant]
     Indication: ANGINA PECTORIS
     Dosage: PRN
  3. BISOPROLOL FUMARATE [Suspect]
     Indication: ANGINA PECTORIS
     Dosage: 10 MILLIGRAM;
     Route: 048
     Dates: start: 20110711, end: 20110719
  4. RAMIPRIL [Concomitant]
     Dosage: 2.5 MILLIGRAM;
     Route: 048
  5. MOVELAT [Concomitant]
     Dosage: PRN
     Route: 061
  6. ATORVASTATIN [Concomitant]
     Dosage: 20 MILLIGRAM; NOCTE
     Route: 048

REACTIONS (4)
  - DYSPNOEA [None]
  - DRUG INEFFECTIVE [None]
  - CHEST DISCOMFORT [None]
  - ANGINA PECTORIS [None]
